FAERS Safety Report 5330363-4 (Version None)
Quarter: 2007Q2

REPORT INFORMATION
  Report Type: 
  Country: None (occurrence: None)
  Receive Date: 20070521
  Receipt Date: 20070430
  Transmission Date: 20071010
  Serious: Yes (Other)
  Sender: FDA-Public Use
  Company Number: US-PFIZER INC-2007005521

PATIENT
  Sex: Female
  Weight: 114 kg

DRUGS (6)
  1. DEPO-PROVERA SUSPENSION/INJ [Suspect]
     Indication: CONTRACEPTION
     Route: 030
     Dates: start: 20060712, end: 20060712
  2. DEPO-PROVERA SUSPENSION/INJ [Suspect]
     Route: 030
     Dates: start: 20061011, end: 20061011
  3. DEPO-PROVERA SUSPENSION/INJ [Suspect]
     Route: 030
     Dates: start: 20070108, end: 20070108
  4. GARDASIL [Concomitant]
  5. ZOLOFT [Concomitant]
     Indication: DEPRESSION
     Dosage: DAILY DOSE:50MG
  6. IMITREX [Concomitant]
     Indication: MIGRAINE

REACTIONS (8)
  - DEHYDRATION [None]
  - DYSPNOEA [None]
  - PALPITATIONS [None]
  - PNEUMOTHORAX [None]
  - PRESYNCOPE [None]
  - SUPRAVENTRICULAR EXTRASYSTOLES [None]
  - SYNCOPE [None]
  - TACHYCARDIA [None]
